FAERS Safety Report 9948025 (Version 1)
Quarter: 2014Q1

REPORT INFORMATION
  Report Type: Report from Study
  Country: US (occurrence: US)
  Receive Date: 20140303
  Receipt Date: 20140303
  Transmission Date: 20141002
  Serious: No
  Sender: FDA-Public Use
  Company Number: US-ABBVIE-13P-163-1061063-00

PATIENT
  Age: 68 Year
  Sex: Female

DRUGS (16)
  1. HUMIRA [Suspect]
     Indication: RHEUMATOID ARTHRITIS
     Dates: start: 20130220
  2. ARAVA [Concomitant]
     Indication: RHEUMATOID ARTHRITIS
     Dosage: 20 MG DAILY
  3. OXYCONTIN [Concomitant]
     Indication: PAIN
  4. ASPIRIN [Concomitant]
     Indication: PROPHYLAXIS
     Dosage: 81 MG DAILY
  5. CORTEF [Concomitant]
     Indication: ADRENAL DISORDER
     Dosage: 20 MG DAILY
  6. AMLODIPINE [Concomitant]
     Indication: HYPERTENSION
     Dosage: 5 MG DAILY
  7. MIRTAZAPINE [Concomitant]
     Indication: DEPRESSION
     Dosage: 45 MG DAILY
  8. METOPROLOL [Concomitant]
     Indication: HYPERTENSION
     Dosage: 25 MG DAILY
  9. PROTONIX [Concomitant]
     Indication: PRODUCT USED FOR UNKNOWN INDICATION
     Dosage: 40 MG DAILY
  10. TIZANIDINE [Concomitant]
     Indication: MUSCLE SPASMS
     Dosage: 4 MG DAILY
  11. LEXAPRO [Concomitant]
     Indication: DEPRESSION
     Dosage: 20 MG DAILY
  12. WELLBUTRIN [Concomitant]
     Indication: DEPRESSION
  13. CLARITIN [Concomitant]
     Indication: HYPERSENSITIVITY
     Dosage: 10 MG DAILY
  14. CALCIUM [Concomitant]
     Indication: PRODUCT USED FOR UNKNOWN INDICATION
  15. VIT D3 [Concomitant]
     Indication: PRODUCT USED FOR UNKNOWN INDICATION
     Dosage: 2000 U DAILY
  16. MULTIVITAMIN [Concomitant]
     Indication: PRODUCT USED FOR UNKNOWN INDICATION
     Dosage: DAILY

REACTIONS (1)
  - Pain [Not Recovered/Not Resolved]
